FAERS Safety Report 20030843 (Version 1)
Quarter: 2021Q4

REPORT INFORMATION
  Report Type: Spontaneous
  Country: JP (occurrence: JP)
  Receive Date: 20211103
  Receipt Date: 20211103
  Transmission Date: 20220303
  Serious: Yes (Hospitalization)
  Sender: FDA-Public Use
  Company Number: JP-Eisai-202107861_LEN-HCC_P_1

PATIENT

DRUGS (1)
  1. LENVIMA [Suspect]
     Active Substance: LENVATINIB
     Indication: Hepatocellular carcinoma
     Dosage: 4 DAYS ON/3 DAYS OFF
     Route: 048

REACTIONS (3)
  - Hypertension [Unknown]
  - Decreased appetite [Unknown]
  - Diarrhoea [Unknown]
